FAERS Safety Report 5231926-7 (Version None)
Quarter: 2007Q1

REPORT INFORMATION
  Report Type: 
  Country: None (occurrence: None)
  Receive Date: 20070206
  Receipt Date: 20070125
  Transmission Date: 20070707
  Serious: Yes (Hospitalization)
  Sender: FDA-Public Use
  Company Number: US-PFIZER INC-2007007254

PATIENT
  Age: 62 Year
  Sex: Male

DRUGS (10)
  1. VERAPAMIL HYDROCHLORIDE [Suspect]
     Dosage: DAILY DOSE:360MG
     Route: 048
  2. ATENOLOL [Suspect]
     Route: 065
  3. CLONIDINE [Suspect]
     Route: 062
  4. IRBESARTAN [Suspect]
     Route: 065
  5. TERAZOSIN HCL [Suspect]
     Dosage: DAILY DOSE:5MG
     Route: 065
  6. FUROSEMIDE [Suspect]
     Dosage: DAILY DOSE:80MG
     Route: 065
  7. METOLAZONE [Suspect]
     Dosage: DAILY DOSE:2.5MG
     Route: 065
  8. INSULIN [Suspect]
     Route: 065
  9. NAPROXEN [Suspect]
     Dosage: DAILY DOSE:250MG
     Route: 065
  10. POTASSIUM CHLORIDE [Suspect]
     Dosage: DAILY DOSE:20MEQ
     Route: 065

REACTIONS (6)
  - ANGINA PECTORIS [None]
  - DYSPNOEA [None]
  - OEDEMA [None]
  - RENAL FAILURE [None]
  - SINUS BRADYCARDIA [None]
  - SYNCOPE [None]
